FAERS Safety Report 4970932-4 (Version None)
Quarter: 2006Q2

REPORT INFORMATION
  Report Type: 
  Country: None (occurrence: None)
  Receive Date: 20060412
  Receipt Date: 20060404
  Transmission Date: 20061013
  Serious: Yes (Other)
  Sender: FDA-Public Use
  Company Number: US-AVENTIS-200613313US

PATIENT
  Sex: Female
  Weight: 74.54 kg

DRUGS (5)
  1. ARAVA [Suspect]
     Indication: RHEUMATOID ARTHRITIS
  2. ALL OTHER THERAPEUTIC PRODUCTS [Concomitant]
  3. BENICAR HCT [Concomitant]
     Dosage: DOSE: 40/25
  4. SSRI [Concomitant]
  5. VITAMIN E [Concomitant]
     Dosage: DOSE: UNK

REACTIONS (9)
  - CHRONIC LYMPHOCYTIC LEUKAEMIA [None]
  - DIARRHOEA [None]
  - HYPOTRICHOSIS [None]
  - IMMUNE SYSTEM DISORDER [None]
  - IMPAIRED HEALING [None]
  - LABORATORY TEST ABNORMAL [None]
  - MOUTH ULCERATION [None]
  - NEUTROPHIL COUNT ABNORMAL [None]
  - STOMACH DISCOMFORT [None]
